FAERS Safety Report 10520217 (Version 1)
Quarter: 2014Q4

REPORT INFORMATION
  Report Type: Spontaneous
  Country: US (occurrence: None)
  Receive Date: 20141014
  Receipt Date: 20141014
  Transmission Date: 20150528
  Serious: Yes (Hospitalization)
  Sender: FDA-Public Use
  Company Number: DL2014-0659

PATIENT
  Age: 22 Year
  Sex: Female

DRUGS (3)
  1. MIFEPRISTONE [Suspect]
     Active Substance: MIFEPRISTONE
     Indication: ABORTION INDUCED
     Route: 048
     Dates: start: 20140305
  2. AZITHROMYCIN [Concomitant]
     Active Substance: AZITHROMYCIN ANHYDROUS
  3. MISOPROSTOL. [Suspect]
     Active Substance: MISOPROSTOL
     Route: 002
     Dates: start: 20140306

REACTIONS (2)
  - Abortion incomplete [None]
  - Syncope [None]

NARRATIVE: CASE EVENT DATE: 20140311
